FAERS Safety Report 6007243-4 (Version None)
Quarter: 2008Q4

REPORT INFORMATION
  Report Type: 
  Country: None (occurrence: None)
  Receive Date: 20081217
  Receipt Date: 20080521
  Transmission Date: 20090506
  Serious: Yes (Other)
  Sender: FDA-Public Use
  Company Number: US-ASTRAZENECA-2008UW02635

PATIENT
  Age: 15246 Day
  Sex: Female
  Weight: 54.4 kg

DRUGS (4)
  1. CRESTOR [Suspect]
     Indication: HYPERCHOLESTEROLAEMIA
     Route: 048
     Dates: start: 20071128, end: 20071129
  2. CRESTOR [Suspect]
     Route: 048
     Dates: start: 20071128, end: 20071129
  3. SYNTHROID [Concomitant]
     Indication: HYPOTHYROIDISM
     Route: 048
  4. MICROGESTIN 1.5/30 [Concomitant]
     Indication: OESTROGEN DEFICIENCY

REACTIONS (8)
  - ABDOMINAL DISTENSION [None]
  - ABDOMINAL PAIN UPPER [None]
  - ANGIOEDEMA [None]
  - CHAPPED LIPS [None]
  - DIARRHOEA [None]
  - DYSPNOEA [None]
  - FATIGUE [None]
  - PALPITATIONS [None]
